FAERS Safety Report 21224021 (Version 1)
Quarter: 2022Q3

REPORT INFORMATION
  Report Type: Spontaneous
  Country: US (occurrence: US)
  Receive Date: 20220817
  Receipt Date: 20220817
  Transmission Date: 20221026
  Serious: No
  Sender: FDA-Public Use
  Company Number: US-SA-2021MK000108

PATIENT
  Age: 74 Year
  Sex: Female
  Weight: 50.848 kg

DRUGS (4)
  1. AFREZZA [Suspect]
     Active Substance: INSULIN HUMAN
     Indication: Type 1 diabetes mellitus
     Dates: start: 202105
  2. AFREZZA [Suspect]
     Active Substance: INSULIN HUMAN
     Dates: start: 202105
  3. TRESIBA [Concomitant]
     Active Substance: INSULIN DEGLUDEC
     Indication: Type 1 diabetes mellitus
  4. FIASP [Concomitant]
     Active Substance: INSULIN ASPART
     Indication: Type 1 diabetes mellitus
     Route: 058

REACTIONS (2)
  - Blood glucose increased [Unknown]
  - Incorrect product administration duration [Unknown]

NARRATIVE: CASE EVENT DATE: 20210702
